FAERS Safety Report 4968839-1 (Version None)
Quarter: 2006Q2

REPORT INFORMATION
  Report Type: 
  Country: None (occurrence: None)
  Receive Date: 20060405
  Receipt Date: 20060325
  Transmission Date: 20061013
  Serious: Yes (Other)
  Sender: FDA-Public Use
  Company Number: 2006018861

PATIENT
  Age: 66 Year
  Sex: Male
  Weight: 136.0791 kg

DRUGS (2)
  1. PROCARDIA [Suspect]
     Indication: HYPERTENSION
     Dates: start: 19940101
  2. PROCARDIA XL [Suspect]
     Indication: HYPERTENSION
     Dates: end: 19950201

REACTIONS (3)
  - BLOOD PRESSURE INCREASED [None]
  - RENAL FAILURE [None]
  - RENAL TRANSPLANT [None]
